FAERS Safety Report 8786566 (Version 2)
Quarter: 2012Q4

REPORT INFORMATION
  Report Type: 
  Country: US (occurrence: US)
  Receive Date: 20120914
  Receipt Date: 20120926
  Transmission Date: 20130627
  Serious: No
  Sender: FDA-Public Use
  Company Number: US-009507513-1209USA003783

PATIENT

DRUGS (1)
  1. EMEND FOR INJECTION [Suspect]

REACTIONS (2)
  - Infusion site irritation [Recovered/Resolved]
  - Wrong technique in drug usage process [Unknown]
